FAERS Safety Report 13329508 (Version 1)
Quarter: 2017Q1

REPORT INFORMATION
  Report Type: Spontaneous
  Country: IN (occurrence: IN)
  Receive Date: 20170313
  Receipt Date: 20170313
  Transmission Date: 20170428
  Serious: Yes (Other)
  Sender: FDA-Public Use
  Company Number: IN-HQ SPECIALTY-IN-2017INT000059

PATIENT
  Age: 42 Year
  Sex: Female
  Weight: 50 kg

DRUGS (2)
  1. CISPLATIN. [Suspect]
     Active Substance: CISPLATIN
     Indication: HEAD AND NECK CANCER
     Dosage: UNK
  2. METHOTREXATE. [Suspect]
     Active Substance: METHOTREXATE
     Indication: HEAD AND NECK CANCER
     Dosage: UNK

REACTIONS (1)
  - Cancer pain [Recovering/Resolving]
